FAERS Safety Report 20096289 (Version 1)
Quarter: 2021Q4

REPORT INFORMATION
  Report Type: Report from Study
  Country: JP (occurrence: JP)
  Receive Date: 20211122
  Receipt Date: 20211122
  Transmission Date: 20220303
  Serious: Yes (Other)
  Sender: FDA-Public Use
  Company Number: JP-ELI_LILLY_AND_COMPANY-JP202111005613

PATIENT
  Age: 35 Year
  Sex: Male

DRUGS (1)
  1. OLUMIANT [Suspect]
     Active Substance: BARICITINIB
     Indication: Atopy
     Dosage: UNK
     Route: 048

REACTIONS (2)
  - Cellulitis [Recovering/Resolving]
  - Erysipelas [Recovering/Resolving]
